FAERS Safety Report 23673134 (Version 1)
Quarter: 2024Q1

REPORT INFORMATION
  Report Type: Spontaneous
  Country: US (occurrence: US)
  Receive Date: 20240326
  Receipt Date: 20240326
  Transmission Date: 20240410
  Serious: No
  Sender: FDA-Public Use
  Company Number: US-MYLANLABS-2024M1023922

PATIENT
  Sex: Female
  Weight: 55.79 kg

DRUGS (1)
  1. ALPRAZOLAM [Suspect]
     Active Substance: ALPRAZOLAM
     Indication: Tremor
     Dosage: UNK
     Route: 065
     Dates: start: 20230306

REACTIONS (1)
  - Malaise [Unknown]
